FAERS Safety Report 10841482 (Version 1)
Quarter: 2015Q1

REPORT INFORMATION
  Report Type: Report from Study
  Country: BR (occurrence: BR)
  Receive Date: 20150220
  Receipt Date: 20150220
  Transmission Date: 20150721
  Serious: Yes (Hospitalization)
  Sender: FDA-Public Use
  Company Number: BR-ROCHE-672150

PATIENT
  Age: 19 Year
  Sex: Female
  Weight: 53 kg

DRUGS (7)
  1. AZULFIDINE [Concomitant]
     Active Substance: SULFASALAZINE
  2. ACTEMRA [Suspect]
     Active Substance: TOCILIZUMAB
     Indication: VASCULITIS
  3. AZATHIOPRINE. [Concomitant]
     Active Substance: AZATHIOPRINE
  4. MABTHERA [Suspect]
     Active Substance: RITUXIMAB
     Indication: VASCULITIS
     Route: 042
     Dates: start: 2010, end: 2010
  5. MABTHERA [Suspect]
     Active Substance: RITUXIMAB
     Indication: JUVENILE IDIOPATHIC ARTHRITIS
     Dosage: FORM: INFUSION; DOSE: 100MG/10ML; INDICATION: VASCULITIS
     Route: 042
     Dates: start: 200904, end: 20091130
  6. METICORTEN [Concomitant]
     Active Substance: PREDNISONE
  7. ACTEMRA [Suspect]
     Active Substance: TOCILIZUMAB
     Indication: JUVENILE IDIOPATHIC ARTHRITIS
     Route: 042
     Dates: start: 2014, end: 201411

REACTIONS (8)
  - Drug ineffective [Unknown]
  - Myoclonus [Recovered/Resolved]
  - Hypersensitivity [Recovered/Resolved]
  - Pain [Recovered/Resolved]
  - Syncope [Recovered/Resolved]
  - Formication [Recovered/Resolved]
  - Throat tightness [Recovered/Resolved]
  - Macule [Recovered/Resolved]

NARRATIVE: CASE EVENT DATE: 200904
